FAERS Safety Report 7529821-3 (Version None)
Quarter: 2011Q2

REPORT INFORMATION
  Report Type: 
  Country: None (occurrence: None)
  Receive Date: 20110607
  Receipt Date: 20110524
  Transmission Date: 20111010
  Serious: Yes (Hospitalization, Disabling, Other)
  Sender: FDA-Public Use
  Company Number: US-CELGENEUS-163-21880-11011576

PATIENT
  Sex: Male
  Weight: 91.2 kg

DRUGS (32)
  1. AMOXICILLIN [Concomitant]
     Route: 048
     Dates: end: 20101026
  2. NEURONTIN [Concomitant]
     Route: 048
     Dates: end: 20100608
  3. OXYGEN [Concomitant]
     Route: 065
  4. ADULT ASPIRIN LOW STRENGTH [Concomitant]
     Indication: THROMBOSIS PROPHYLAXIS
     Route: 048
  5. ATIVAN [Concomitant]
     Route: 048
  6. FLEXERIL [Concomitant]
     Route: 048
  7. HYDROCHLOROTHIAZIDE [Concomitant]
     Dosage: 25 MILLIGRAM
     Route: 048
  8. TESSALON [Concomitant]
     Route: 048
  9. IMMUNE GLOBULIN INTRAVENOUS (HUMAN) [Concomitant]
     Dosage: 1G/KG
     Route: 051
     Dates: start: 20101012, end: 20101012
  10. REVLIMID [Suspect]
     Route: 048
     Dates: start: 20080801, end: 20101201
  11. MOBIC [Concomitant]
     Dosage: 7.5 MILLIGRAM
     Route: 048
  12. REVLIMID [Suspect]
     Indication: MANTLE CELL LYMPHOMA
     Dosage: 25 MILLIGRAM
     Route: 048
     Dates: start: 20071016, end: 20101201
  13. BENADRYL [Concomitant]
     Dosage: 25 MILLIGRAM
     Route: 065
     Dates: start: 20100706
  14. PULMICORT [Concomitant]
     Route: 055
  15. SPIRIVA [Concomitant]
     Route: 055
  16. MORPHINE [Concomitant]
     Indication: PAIN
     Route: 065
  17. ALLEGRA [Concomitant]
     Dosage: 180 MILLIGRAM
     Route: 048
  18. AMBIEN [Concomitant]
     Route: 048
  19. PROTONIX [Concomitant]
     Dosage: 40 MILLIGRAM
     Route: 048
  20. BENADRYL [Concomitant]
     Dosage: 50 MILLIGRAM
     Route: 048
     Dates: start: 20101012
  21. CALCIUM WITH VITAMIN D [Concomitant]
     Route: 048
  22. CARIMUNE [Concomitant]
     Dosage: 1 GRAM
     Route: 051
  23. CARIMUNE [Concomitant]
     Dosage: 1 GRAM
     Route: 051
     Dates: start: 20100706
  24. LEXAPRO [Concomitant]
     Dosage: 20 MILLIGRAM
     Route: 048
  25. MAGNESIUM SULFATE [Concomitant]
     Dosage: 500 MILLIGRAM
     Route: 048
  26. POTASSIUM CHLORIDE [Concomitant]
     Dosage: 20 MILLIEQUIVALENTS
     Route: 048
     Dates: end: 20101026
  27. ADVAIR DISKUS 100/50 [Concomitant]
     Route: 055
  28. ALBUTEROL [Concomitant]
     Route: 055
  29. ACETAMINOPHEN [Concomitant]
     Dosage: 650 MILLIGRAM
     Route: 048
     Dates: start: 20100706
  30. VALTREX [Concomitant]
     Dosage: 1000 MILLIGRAM
     Route: 048
  31. WELLBUTRIN XL [Concomitant]
     Dosage: 300 MILLIGRAM
     Route: 048
  32. SEPTRA [Concomitant]
     Route: 048
     Dates: end: 20101026

REACTIONS (3)
  - BLOOD DISORDER [None]
  - ACUTE LYMPHOCYTIC LEUKAEMIA [None]
  - PULMONARY EMBOLISM [None]
